FAERS Safety Report 23045718 (Version 1)
Quarter: 2023Q4

REPORT INFORMATION
  Report Type: Spontaneous
  Country: BR (occurrence: BR)
  Receive Date: 20231009
  Receipt Date: 20231009
  Transmission Date: 20240110
  Serious: Yes (Other)
  Sender: FDA-Public Use
  Company Number: BR-JNJFOC-20230971261

PATIENT
  Sex: Male
  Weight: 70 kg

DRUGS (1)
  1. ERLEADA [Suspect]
     Active Substance: APALUTAMIDE
     Indication: Prostate cancer metastatic
     Route: 048

REACTIONS (8)
  - Surgery [Unknown]
  - Radiotherapy [Unknown]
  - Thrombosis [Unknown]
  - Insomnia [Recovered/Resolved]
  - Feeling hot [Recovering/Resolving]
  - Fatigue [Unknown]
  - Lichen planus [Unknown]
  - Alopecia [Unknown]
